FAERS Safety Report 5619813-3 (Version None)
Quarter: 2008Q1

REPORT INFORMATION
  Report Type: 
  Country: None (occurrence: None)
  Receive Date: 20080208
  Receipt Date: 20080205
  Transmission Date: 20080703
  Serious: Yes (Other)
  Sender: FDA-Public Use
  Company Number: PHEH2007US14463

PATIENT
  Age: 41 Year
  Sex: Female

DRUGS (6)
  1. CLOZARIL [Suspect]
     Dosage: 500 MG, QD
     Route: 048
     Dates: start: 19910101, end: 20060101
  2. INTERFERON [Suspect]
     Indication: HEPATITIS C
  3. NEUPOGEN [Concomitant]
  4. COGENTIN [Concomitant]
  5. LORAZEPAM [Concomitant]
     Dosage: UNK, PRN
  6. CLOZAPINE [Suspect]
     Dosage: 500 MG, QD
     Route: 048
     Dates: start: 20060101

REACTIONS (4)
  - HEPATIC ENZYME INCREASED [None]
  - HEPATITIS C [None]
  - NEUTROPHIL COUNT DECREASED [None]
  - WHITE BLOOD CELL COUNT DECREASED [None]
